FAERS Safety Report 4867796-6 (Version None)
Quarter: 2005Q4

REPORT INFORMATION
  Report Type: 
  Country: None (occurrence: None)
  Receive Date: 20051223
  Receipt Date: 20051223
  Transmission Date: 20060501
  Serious: Yes (Hospitalization, Other)
  Sender: FDA-Public Use
  Company Number: None

PATIENT
  Sex: Female
  Weight: 62.8 kg

DRUGS (10)
  1. CYCLOPHOSPHAMIDE [Suspect]
     Indication: BURKITT'S LYMPHOMA
     Dosage: SEE IMAGE
     Dates: start: 20051111, end: 20051115
  2. CYCLOPHOSPHAMIDE [Suspect]
     Indication: LEUKAEMIA
     Dosage: SEE IMAGE
     Dates: start: 20051111, end: 20051115
  3. CYCLOPHOSPHAMIDE [Suspect]
     Indication: BURKITT'S LYMPHOMA
     Dosage: SEE IMAGE
     Dates: start: 20051111
  4. CYCLOPHOSPHAMIDE [Suspect]
     Indication: LEUKAEMIA
     Dosage: SEE IMAGE
     Dates: start: 20051111
  5. CYTOXAN [Suspect]
     Dosage: SEE IMAGE
     Dates: start: 20051111, end: 20051111
  6. DOXORUBICIN HCL [Suspect]
     Dosage: SEE IMAGE
     Dates: start: 20051114, end: 20051115
  7. LEUCOVORIN CALCIUM [Suspect]
     Dosage: SEE IMAGE
     Dates: start: 20051111, end: 20051111
  8. METHOTREXATE [Suspect]
     Dosage: SEE IMAGE
     Dates: start: 20051111
  9. RITUXIMAB. [Suspect]
     Dosage: SEE IMAGE
     Dates: start: 20051118, end: 20051118
  10. HYDROCORTISONE [Concomitant]

REACTIONS (4)
  - DEHYDRATION [None]
  - HYPOKALAEMIA [None]
  - MUCOSAL INFLAMMATION [None]
  - STOMATITIS [None]
